FAERS Safety Report 7620429-8 (Version None)
Quarter: 2011Q3

REPORT INFORMATION
  Report Type: 
  Country: None (occurrence: None)
  Receive Date: 20110719
  Receipt Date: 20110704
  Transmission Date: 20111222
  Serious: Yes (Hospitalization)
  Sender: FDA-Public Use
  Company Number: DE-JNJFOC-20110503907

PATIENT
  Sex: Female
  Weight: 3.31 kg

DRUGS (2)
  1. TOPAMAX [Suspect]
     Indication: MATERNAL EXPOSURE DURING PREGNANCY
     Route: 064
  2. TOPAMAX [Suspect]
     Indication: EXPOSURE DURING BREAST FEEDING
     Route: 064

REACTIONS (2)
  - BREAST FEEDING [None]
  - DRUG WITHDRAWAL CONVULSIONS [None]
